FAERS Safety Report 9231061 (Version 2)
Quarter: 2013Q2

REPORT INFORMATION
  Report Type: Spontaneous
  Country: JP (occurrence: JP)
  Receive Date: 20130415
  Receipt Date: 20130503
  Transmission Date: 20140414
  Serious: Yes (Hospitalization, Other)
  Sender: FDA-Public Use
  Company Number: JP-NOVOPROD-373933

PATIENT
  Age: 60 Year
  Sex: Male

DRUGS (3)
  1. VICTOZA HIKACHU INJECTION [Suspect]
     Indication: DIABETES MELLITUS
     Dosage: 0.9 MG, QD
     Route: 058
     Dates: start: 20110824, end: 20130317
  2. VICTOZA HIKACHU INJECTION [Suspect]
     Dosage: 0.9 MG, QD
     Route: 058
     Dates: start: 20130409
  3. GLIMICRON [Concomitant]
     Indication: DIABETES MELLITUS
     Dosage: UNK
     Dates: start: 20130317, end: 20130409

REACTIONS (2)
  - Prostate cancer [Not Recovered/Not Resolved]
  - Hyperglycaemia [Recovered/Resolved]
